FAERS Safety Report 6304201-7 (Version None)
Quarter: 2009Q3

REPORT INFORMATION
  Report Type: 
  Country: None (occurrence: None)
  Receive Date: 20090811
  Receipt Date: 20090805
  Transmission Date: 20100115
  Serious: Yes (Hospitalization, Other)
  Sender: FDA-Public Use
  Company Number: CH-WYE-G03945509

PATIENT
  Age: 30 Year
  Sex: Female

DRUGS (1)
  1. EFFEXOR [Suspect]
     Indication: DEPRESSION
     Dates: start: 20080619, end: 20090614

REACTIONS (3)
  - DRUG INTOLERANCE [None]
  - PANCREATITIS ACUTE [None]
  - STRESS [None]
